FAERS Safety Report 4880674-1 (Version None)
Quarter: 2006Q1

REPORT INFORMATION
  Report Type: 
  Country: None (occurrence: None)
  Receive Date: 20060113
  Receipt Date: 20050218
  Transmission Date: 20060701
  Serious: Yes (Hospitalization)
  Sender: FDA-Public Use
  Company Number: US-MERCK-0502USA02903

PATIENT
  Age: 66 Year
  Sex: Male
  Weight: 87 kg

DRUGS (7)
  1. VIOXX [Suspect]
     Indication: ARTHRALGIA
     Route: 048
     Dates: start: 20000719, end: 20041001
  2. DETROL [Concomitant]
     Route: 065
  3. NAPROXEN [Concomitant]
     Route: 065
  4. CEPHALEXIN [Concomitant]
     Route: 065
  5. NEURONTIN [Concomitant]
     Route: 065
  6. FLOMAX (MORNIFLUMATE) [Concomitant]
     Route: 065
  7. GLIPIZIDE [Concomitant]
     Route: 065

REACTIONS (6)
  - CARPAL TUNNEL SYNDROME [None]
  - CATARACT [None]
  - DIABETES MELLITUS [None]
  - DIVERTICULITIS [None]
  - MYOCARDIAL INFARCTION [None]
  - PROSTATIC DISORDER [None]
